FAERS Safety Report 8080054-4 (Version None)
Quarter: 2012Q1

REPORT INFORMATION
  Report Type: 
  Country: None (occurrence: None)
  Receive Date: 20120128
  Receipt Date: 20110811
  Transmission Date: 20120608
  Serious: No
  Sender: FDA-Public Use
  Company Number: US-ABBOTT-11P-163-0845934-00

PATIENT
  Sex: Male
  Weight: 49.94 kg

DRUGS (3)
  1. IMODIUM [Concomitant]
     Indication: CROHN'S DISEASE
  2. HUMIRA [Suspect]
     Indication: CROHN'S DISEASE
     Dates: start: 20080101, end: 20110601
  3. SULFASALAZINE [Concomitant]
     Indication: CROHN'S DISEASE

REACTIONS (2)
  - CELLULITIS [None]
  - ARTHRALGIA [None]
